FAERS Safety Report 10012151 (Version 3)
Quarter: 2014Q2

REPORT INFORMATION
  Report Type: Report from Study
  Country: US (occurrence: US)
  Receive Date: 20140314
  Receipt Date: 20140408
  Transmission Date: 20141212
  Serious: Yes (Death)
  Sender: FDA-Public Use
  Company Number: US-VIIV HEALTHCARE LIMITED-A1064768B

PATIENT
  Age: 0 Day
  Sex: Female
  Weight: .8 kg

DRUGS (3)
  1. ABACAVIR [Suspect]
     Indication: HIV INFECTION
     Dosage: 600MG PER DAY
     Route: 064
  2. LAMIVUDINE-HIV [Suspect]
     Indication: HIV INFECTION
     Dosage: 100MG PER DAY
     Route: 064
  3. KALETRA [Suspect]
     Indication: HIV INFECTION
     Dosage: 4U PER DAY
     Route: 064

REACTIONS (5)
  - Acute hepatic failure [Fatal]
  - Renal failure acute [Fatal]
  - Respiratory arrest [Fatal]
  - Premature baby [Fatal]
  - Foetal exposure during pregnancy [Unknown]
